FAERS Safety Report 5726411-X (Version None)
Quarter: 2008Q2

REPORT INFORMATION
  Report Type: 
  Country: None (occurrence: None)
  Receive Date: 20080502
  Receipt Date: 20080429
  Transmission Date: 20081010
  Serious: Yes (Other)
  Sender: FDA-Public Use
  Company Number: A0719162A

PATIENT
  Age: 47 Year
  Sex: Female
  Weight: 78.2 kg

DRUGS (3)
  1. TYKERB [Suspect]
     Indication: BREAST CANCER
     Dosage: 5TAB PER DAY
     Route: 048
     Dates: start: 20080301
  2. XELODA [Concomitant]
  3. TEMAZEPAM [Concomitant]

REACTIONS (5)
  - BACTERAEMIA [None]
  - CHILLS [None]
  - CONSTIPATION [None]
  - DIARRHOEA [None]
  - PYREXIA [None]
